FAERS Safety Report 24412458 (Version 1)
Quarter: 2024Q4

REPORT INFORMATION
  Report Type: Spontaneous
  Country: US (occurrence: None)
  Receive Date: 20241008
  Receipt Date: 20241008
  Transmission Date: 20250115
  Serious: No
  Sender: Public
  Company Number: None

PATIENT
  Age: 92 Year
  Sex: Female

DRUGS (1)
  1. XDEMVY [Suspect]
     Active Substance: LOTILANER
     Indication: Demodex blepharitis
     Dates: start: 20240924, end: 20241006

REACTIONS (4)
  - Hypersensitivity [None]
  - Dyspnoea [None]
  - Eyelids pruritus [None]
  - Pruritus [None]
